FAERS Safety Report 6069149-4 (Version None)
Quarter: 2009Q1

REPORT INFORMATION
  Report Type: 
  Country: None (occurrence: None)
  Receive Date: 20090203
  Receipt Date: 20090128
  Transmission Date: 20090719
  Serious: Yes (Life-Threatening)
  Sender: FDA-Public Use
  Company Number: ADE2009-0432

PATIENT
  Age: 72 Year
  Sex: Male

DRUGS (4)
  1. CITALOPRAM HYDROBROMIDE [Suspect]
     Dosage: ORAL
     Route: 048
     Dates: start: 20080201, end: 20080313
  2. EXELON [Suspect]
     Indication: PARKINSON'S DISEASE
     Dosage: 1.5 MG - BID - ORAL
     Route: 048
     Dates: start: 20080219, end: 20080313
  3. QUETIAPINE FUMARATE [Suspect]
     Indication: PARKINSON'S DISEASE
     Dosage: ORAL
     Route: 048
     Dates: start: 20080201, end: 20080313
  4. MADOPAR [Concomitant]

REACTIONS (1)
  - NEUROLEPTIC MALIGNANT SYNDROME [None]
